FAERS Safety Report 10348456 (Version 1)
Quarter: 2014Q3

REPORT INFORMATION
  Report Type: Report from Study
  Country: US (occurrence: US)
  Receive Date: 20140729
  Receipt Date: 20140729
  Transmission Date: 20150326
  Serious: No
  Sender: FDA-Public Use
  Company Number: US-ABBVIE-13P-163-1123345-00

PATIENT
  Sex: Male
  Weight: 124.85 kg

DRUGS (6)
  1. NIASPAN [Suspect]
     Active Substance: NIACIN
     Indication: BLOOD TRIGLYCERIDES INCREASED
     Dosage: 500 MG TAKEN IN THE AFTERNOON
     Dates: start: 20130719
  2. CRESTOR [Concomitant]
     Active Substance: ROSUVASTATIN CALCIUM
     Indication: PRODUCT USED FOR UNKNOWN INDICATION
  3. GABAPENTIN. [Concomitant]
     Active Substance: GABAPENTIN
     Indication: PRODUCT USED FOR UNKNOWN INDICATION
  4. AMITRIPTYLINE [Concomitant]
     Active Substance: AMITRIPTYLINE
     Indication: PRODUCT USED FOR UNKNOWN INDICATION
  5. SULFA-TRIMETHOPRIM [Concomitant]
     Indication: PRODUCT USED FOR UNKNOWN INDICATION
  6. GEMFIBROZIL. [Concomitant]
     Active Substance: GEMFIBROZIL
     Indication: PRODUCT USED FOR UNKNOWN INDICATION

REACTIONS (4)
  - Hot flush [Recovered/Resolved]
  - Hyperhidrosis [Unknown]
  - Balance disorder [Recovered/Resolved]
  - Dizziness [Recovered/Resolved]
